FAERS Safety Report 4726020-5 (Version None)
Quarter: 2005Q3

REPORT INFORMATION
  Report Type: 
  Country: None (occurrence: None)
  Receive Date: 20050725
  Receipt Date: 20050708
  Transmission Date: 20060218
  Serious: Yes (Hospitalization)
  Sender: FDA-Public Use
  Company Number: WAES 0505USA03422

PATIENT
  Age: 77 Year
  Sex: Male

DRUGS (6)
  1. SINGULAIR [Suspect]
     Indication: ASTHMA
     Dosage: 10 MG/DAILY PO
     Route: 048
     Dates: start: 20040723, end: 20050202
  2. PULMICORT [Suspect]
     Indication: ASTHMA
     Dosage: INH
     Route: 055
     Dates: start: 20030402
  3. AMLODIN [Concomitant]
  4. GASTROM [Concomitant]
  5. MEPTIN [Concomitant]
  6. ZANTAC [Concomitant]

REACTIONS (2)
  - ANOREXIA [None]
  - HALLUCINATION [None]
